FAERS Safety Report 26053354 (Version 1)
Quarter: 2025Q4

REPORT INFORMATION
  Report Type: Other
  Country: US (occurrence: US)
  Receive Date: 20251117
  Receipt Date: 20251117
  Transmission Date: 20260117
  Serious: Yes (Hospitalization, Other)
  Sender: AMNEAL
  Company Number: US-AMNEAL PHARMACEUTICALS-2025-AMRX-04297

PATIENT
  Sex: Female

DRUGS (2)
  1. LEVOTHYROXINE SODIUM [Suspect]
     Active Substance: LEVOTHYROXINE SODIUM
     Indication: Product used for unknown indication
     Dosage: 0.125 MG
     Route: 048
  2. LEVOTHYROXINE SODIUM [Suspect]
     Active Substance: LEVOTHYROXINE SODIUM
     Dosage: 0.15 MG
     Route: 048

REACTIONS (17)
  - Prion disease [Not Recovered/Not Resolved]
  - Coma [Recovered/Resolved]
  - Fall [Unknown]
  - Encopresis [Recovered/Resolved]
  - Enuresis [Recovered/Resolved]
  - Cardiac failure [Recovered/Resolved]
  - Micrographia [Recovered/Resolved]
  - Head injury [Recovered/Resolved]
  - Road traffic accident [Recovered/Resolved]
  - Confusional state [Recovered/Resolved]
  - Blood thyroid stimulating hormone increased [Recovered/Resolved]
  - Cognitive disorder [Not Recovered/Not Resolved]
  - Dysarthria [Recovered/Resolved]
  - Balance disorder [Recovered/Resolved]
  - Gait disturbance [Recovered/Resolved]
  - Muscular weakness [Recovered/Resolved]
  - Product quality issue [Unknown]

NARRATIVE: CASE EVENT DATE: 20240309
